FAERS Safety Report 9060953 (Version 1)
Quarter: 2013Q1

REPORT INFORMATION
  Report Type: Spontaneous
  Country: BR (occurrence: BR)
  Receive Date: 20130213
  Receipt Date: 20130213
  Transmission Date: 20140127
  Serious: Yes (Other)
  Sender: FDA-Public Use
  Company Number: BR-AMGEN-BRACT2013008871

PATIENT
  Age: 24 Year
  Sex: Female
  Weight: 68.98 kg

DRUGS (2)
  1. ENBREL [Suspect]
     Indication: RHEUMATOID ARTHRITIS
     Dosage: 50 MG, ONCE WEEKLY
     Route: 058
     Dates: start: 20100301
  2. ENBREL [Suspect]
     Dosage: 50 MG, EVERY 2 WEEKS
     Route: 058
     Dates: end: 20130121

REACTIONS (3)
  - Needle issue [Unknown]
  - Spinal column stenosis [Unknown]
  - Injection site pain [Not Recovered/Not Resolved]
